FAERS Safety Report 11220199 (Version 1)
Quarter: 2015Q2

REPORT INFORMATION
  Report Type: Report from Study
  Country: US (occurrence: US)
  Receive Date: 20150625
  Receipt Date: 20150625
  Transmission Date: 20150821
  Serious: No
  Sender: FDA-Public Use
  Company Number: US-EXELIXIS-CABO-14004342

PATIENT
  Sex: Female

DRUGS (9)
  1. CABOZANTINIB [Suspect]
     Active Substance: CABOZANTINIB
     Dosage: 100 MG, QD
     Route: 048
     Dates: start: 20140725
  2. CABOZANTINIB [Suspect]
     Active Substance: CABOZANTINIB
     Indication: THYROID CANCER
     Dosage: 140 MG, QD
     Route: 048
     Dates: start: 20140507, end: 2014
  3. DEXILANT [Concomitant]
     Active Substance: DEXLANSOPRAZOLE
  4. CABOZANTINIB [Suspect]
     Active Substance: CABOZANTINIB
     Dosage: 140 MG, QD
     Route: 048
     Dates: start: 2014, end: 20140723
  5. CABOZANTINIB [Suspect]
     Active Substance: CABOZANTINIB
     Dosage: 40 MG, QD
     Route: 048
     Dates: start: 20140910
  6. OMEPRAZOLE. [Concomitant]
     Active Substance: OMEPRAZOLE
  7. SYNTHROID [Concomitant]
     Active Substance: LEVOTHYROXINE SODIUM
  8. CYMBALTA [Concomitant]
     Active Substance: DULOXETINE HYDROCHLORIDE
  9. PREDNISONE. [Concomitant]
     Active Substance: PREDNISONE

REACTIONS (20)
  - Weight decreased [Unknown]
  - Lethargy [Unknown]
  - Tooth extraction [Unknown]
  - Hair colour changes [Unknown]
  - Oral pain [Unknown]
  - Drug intolerance [Unknown]
  - Glossodynia [Unknown]
  - Abnormal behaviour [Unknown]
  - Pain in extremity [Unknown]
  - Fatigue [Unknown]
  - Stomatitis [Unknown]
  - Gastrooesophageal reflux disease [Unknown]
  - Oropharyngeal pain [Unknown]
  - Malignant neoplasm progression [Unknown]
  - Dry mouth [Not Recovered/Not Resolved]
  - Facial pain [Unknown]
  - Dysphagia [Unknown]
  - Oral pain [Not Recovered/Not Resolved]
  - Dehydration [Unknown]
  - Decreased appetite [Unknown]

NARRATIVE: CASE EVENT DATE: 2014
